FAERS Safety Report 22172072 (Version 1)
Quarter: 2023Q2

REPORT INFORMATION
  Report Type: Spontaneous
  Country: US (occurrence: US)
  Receive Date: 20230404
  Receipt Date: 20230404
  Transmission Date: 20230722
  Serious: No
  Sender: FDA-Public Use
  Company Number: US-GALDERMA-US2023002877

PATIENT

DRUGS (1)
  1. DIFFERIN GEL [Suspect]
     Active Substance: ADAPALENE
     Indication: Product used for unknown indication
     Dosage: 1 DOSAGE FORM
     Route: 061
     Dates: end: 202302

REACTIONS (6)
  - Skin erosion [Unknown]
  - Dry skin [Unknown]
  - Skin exfoliation [Unknown]
  - Chemical burn of skin [Unknown]
  - Pain of skin [Unknown]
  - Lip exfoliation [Unknown]
